FAERS Safety Report 4354778-6 (Version None)
Quarter: 2004Q2

REPORT INFORMATION
  Report Type: 
  Country: None (occurrence: None)
  Receive Date: 20040507
  Receipt Date: 20030411
  Transmission Date: 20050107
  Serious: Yes (Hospitalization, Disabling)
  Sender: FDA-Public Use
  Company Number: US-MERCK-0304USA01260

PATIENT
  Age: 55 Year
  Sex: Female
  Weight: 64 kg

DRUGS (14)
  1. FOSAMAX [Concomitant]
     Route: 065
  2. ATACAND [Concomitant]
     Indication: HYPERTENSION
     Route: 065
  3. CELEBREX [Concomitant]
     Route: 048
     Dates: start: 20000415
  4. ESTRATEST [Concomitant]
     Indication: HORMONE REPLACEMENT THERAPY
     Route: 065
     Dates: start: 19920101
  5. ALLEGRA [Concomitant]
     Indication: HYPERSENSITIVITY
     Route: 065
  6. MOTRIN [Concomitant]
     Indication: ARTHRALGIA
     Route: 065
     Dates: start: 19990101
  7. MOTRIN [Concomitant]
     Indication: RHEUMATOID ARTHRITIS
     Route: 065
     Dates: start: 19990101
  8. INDOMETHACIN [Concomitant]
     Route: 048
     Dates: start: 20000618
  9. SYNTHROID [Concomitant]
     Indication: HYPOTHYROIDISM
     Route: 048
  10. METHOTREXATE [Concomitant]
     Indication: ARTHRITIS
     Route: 065
     Dates: start: 20010101
  11. VIOXX [Suspect]
     Indication: PAIN IN EXTREMITY
     Route: 048
     Dates: start: 19990101
  12. VIOXX [Suspect]
     Route: 048
     Dates: start: 20000410
  13. VIOXX [Suspect]
     Indication: ARTHRALGIA
     Route: 048
     Dates: start: 19990101
  14. VIOXX [Suspect]
     Route: 048
     Dates: start: 20000410

REACTIONS (25)
  - ABDOMINAL PAIN UPPER [None]
  - ANGINA UNSTABLE [None]
  - AORTIC VALVE INCOMPETENCE [None]
  - ARTHRALGIA [None]
  - ASTHENIA [None]
  - CARDIAC MURMUR [None]
  - CARPAL TUNNEL SYNDROME [None]
  - CHEST PAIN [None]
  - DIZZINESS [None]
  - DYSPNOEA [None]
  - ELECTROCARDIOGRAM T WAVE ABNORMAL [None]
  - GENITAL RASH [None]
  - HEADACHE [None]
  - HYPERTENSION [None]
  - INJURY [None]
  - MITRAL VALVE INCOMPETENCE [None]
  - OSTEOARTHRITIS [None]
  - PAIN [None]
  - PAIN IN EXTREMITY [None]
  - PARAESTHESIA [None]
  - TINNITUS [None]
  - TRICUSPID VALVE INCOMPETENCE [None]
  - URINARY TRACT INFECTION [None]
  - VENTRICULAR HYPERTROPHY [None]
  - VISION BLURRED [None]
